FAERS Safety Report 18703268 (Version 1)
Quarter: 2021Q1

REPORT INFORMATION
  Report Type: Spontaneous
  Country: US (occurrence: US)
  Receive Date: 20210105
  Receipt Date: 20210105
  Transmission Date: 20210419
  Serious: No
  Sender: FDA-Public Use
  Company Number: US-LUPIN PHARMACEUTICALS INC.-2020-02879

PATIENT

DRUGS (3)
  1. QUINAPRIL TABLETS USP 10 MG [Suspect]
     Active Substance: QUINAPRIL
     Dosage: 10 MILLIGRAM, BID
     Route: 065
     Dates: start: 201903
  2. QUINAPRIL TABLETS USP 10 MG [Suspect]
     Active Substance: QUINAPRIL
     Indication: BLOOD PRESSURE ABNORMAL
     Dosage: 10 MILLIGRAM, QD (FOR LAST 30 YEARS)
     Route: 065
  3. QUINAPRIL TABLETS USP 10 MG [Suspect]
     Active Substance: QUINAPRIL
     Dosage: 30 MILLIGRAM, QD (20 MG IN THE MORNING AND 10 MG IN THE EVENING)
     Route: 065
     Dates: start: 20200522

REACTIONS (2)
  - Drug effect less than expected [Unknown]
  - Hypertension [Unknown]
